FAERS Safety Report 6822875-9 (Version None)
Quarter: 2010Q3

REPORT INFORMATION
  Report Type: 
  Country: None (occurrence: None)
  Receive Date: 20100707
  Receipt Date: 20100707
  Transmission Date: 20110219
  Serious: Yes (Life-Threatening, Hospitalization, Other)
  Sender: FDA-Public Use
  Company Number: None

PATIENT
  Age: 36 Year
  Sex: Female
  Weight: 60.3284 kg

DRUGS (1)
  1. OCELLA 1 TAB PO QD BARR [Suspect]
     Indication: ORAL CONTRACEPTION
     Dosage: 28 TABLET TAKE ONE DAILY PO
     Route: 048
     Dates: start: 20080101, end: 20100101

REACTIONS (4)
  - ABDOMINAL ABSCESS [None]
  - CHOLECYSTITIS INFECTIVE [None]
  - CHOLELITHIASIS [None]
  - HYPOTENSION [None]
